FAERS Safety Report 8146360-X (Version None)
Quarter: 2012Q1

REPORT INFORMATION
  Report Type: 
  Country: None (occurrence: None)
  Receive Date: 20120217
  Receipt Date: 20120103
  Transmission Date: 20120608
  Serious: No
  Sender: FDA-Public Use
  Company Number: US-ABBOTT-12P-163-0889088-00

PATIENT
  Sex: Male
  Weight: 85.806 kg

DRUGS (5)
  1. TRAVATAN [Concomitant]
     Indication: GLAUCOMA
  2. TIMOLOL MALEATE [Concomitant]
     Indication: GLAUCOMA
     Route: 047
  3. LOVAZA [Concomitant]
     Indication: SUPPLEMENTATION THERAPY
  4. SIMCOR [Suspect]
     Indication: BLOOD CHOLESTEROL INCREASED
     Dates: start: 20111228
  5. TRICOR [Concomitant]
     Indication: BLOOD CHOLESTEROL INCREASED

REACTIONS (5)
  - FEELING HOT [None]
  - ERYTHEMA [None]
  - FORMICATION [None]
  - PRURITUS GENERALISED [None]
  - PARAESTHESIA [None]
